FAERS Safety Report 8438755-1 (Version None)
Quarter: 2012Q2

REPORT INFORMATION
  Report Type: 
  Country: None (occurrence: None)
  Receive Date: 20120611
  Receipt Date: 20120611
  Transmission Date: 20120825
  Serious: Yes (Life-Threatening, Disabling, Other)
  Sender: FDA-Public Use
  Company Number: None

PATIENT
  Age: 72 Year
  Sex: Female
  Weight: 103.4201 kg

DRUGS (1)
  1. XOLAIR [Suspect]
     Indication: ASTHMA
     Dosage: 5 MG 2 TIMES A MONTH INJECTIONS, INJECTIONS WHY DIVIDED INTO TWO SITES
     Dates: start: 20110526, end: 20111027

REACTIONS (17)
  - ARTHRITIS [None]
  - LYMPHADENOPATHY [None]
  - DIZZINESS [None]
  - DRUG HYPERSENSITIVITY [None]
  - ALOPECIA [None]
  - PAIN IN EXTREMITY [None]
  - WEIGHT INCREASED [None]
  - FATIGUE [None]
  - UPPER RESPIRATORY TRACT INFECTION [None]
  - DYSPHAGIA [None]
  - DYSPNOEA [None]
  - SINUSITIS [None]
  - HYPOTENSION [None]
  - ANXIETY [None]
  - DYSPHONIA [None]
  - VISION BLURRED [None]
  - CHEST DISCOMFORT [None]
